FAERS Safety Report 9664367 (Version 3)
Quarter: 2013Q4

REPORT INFORMATION
  Report Type: Spontaneous
  Country: US (occurrence: US)
  Receive Date: 20131101
  Receipt Date: 20131212
  Transmission Date: 20140711
  Serious: Yes (Hospitalization)
  Sender: FDA-Public Use
  Company Number: US-BAYER-2013-130759

PATIENT
  Age: 39 Year
  Sex: Female
  Weight: 72.56 kg

DRUGS (1)
  1. MIRENA [Suspect]
     Indication: CONTRACEPTION
     Dosage: 20 MCG/DL, CONT
     Route: 015
     Dates: start: 20111010, end: 20111028

REACTIONS (9)
  - Uterine perforation [None]
  - Nerve compression [None]
  - Abdominal pain [None]
  - Pelvic pain [None]
  - Pain in extremity [None]
  - Gait disturbance [None]
  - Device difficult to use [None]
  - Injury [None]
  - Emotional distress [None]
